FAERS Safety Report 6618455 (Version 5)
Quarter: 2016Q4

REPORT INFORMATION
  Report Type: Spontaneous
  Country: US (occurrence: US)
  Receive Date: 20080418
  Receipt Date: 20161230
  Transmission Date: 20170207
  Serious: No
  Sender: FDA-Public Use
  Company Number: US-ASTRAZENECA-2007UW14847

PATIENT
  Age: 28048 Day
  Sex: Female
  Weight: 72.6 kg

DRUGS (5)
  1. TOPROL XL [Suspect]
     Active Substance: METOPROLOL SUCCINATE
     Indication: HYPERTENSION
     Route: 048
     Dates: start: 200512
  2. TOPROL XL [Suspect]
     Active Substance: METOPROLOL SUCCINATE
     Indication: HYPERTENSION
     Route: 048
     Dates: start: 201603
  3. TOPROL XL [Suspect]
     Active Substance: METOPROLOL SUCCINATE
     Indication: HYPERTENSION
     Route: 048
     Dates: start: 20161112
  4. VITAMIN [Concomitant]
     Active Substance: VITAMINS
  5. TOPROL XL [Suspect]
     Active Substance: METOPROLOL SUCCINATE
     Indication: HYPERTENSION
     Route: 048
     Dates: start: 2007

REACTIONS (17)
  - Renal cyst [Unknown]
  - Heart rate increased [Unknown]
  - Chest pain [Unknown]
  - Depressed mood [Recovered/Resolved]
  - Blood pressure decreased [Recovered/Resolved]
  - Musculoskeletal pain [Recovered/Resolved]
  - Malaise [Unknown]
  - Neck pain [Unknown]
  - Blood pressure inadequately controlled [Unknown]
  - Migraine [Recovered/Resolved]
  - Feeling abnormal [Recovered/Resolved]
  - Limb injury [Unknown]
  - Hypoacusis [Unknown]
  - Laceration [Unknown]
  - Nausea [Recovered/Resolved]
  - Dizziness [Recovered/Resolved]
  - Intentional product misuse [Unknown]

NARRATIVE: CASE EVENT DATE: 200706
